FAERS Safety Report 18982562 (Version 1)
Quarter: 2021Q1

REPORT INFORMATION
  Report Type: Report from Study
  Country: US (occurrence: US)
  Receive Date: 20210308
  Receipt Date: 20210308
  Transmission Date: 20210420
  Serious: No
  Sender: FDA-Public Use
  Company Number: NVSC2021US053636

PATIENT
  Age: 58 Year
  Sex: Female

DRUGS (2)
  1. COSENTYX [Suspect]
     Active Substance: SECUKINUMAB
     Indication: PRODUCT USED FOR UNKNOWN INDICATION
     Dosage: 150 MG, QW (ONCE WEEKLY FOR 5 WEEKS)
     Route: 058
     Dates: start: 202011
  2. COSENTYX [Suspect]
     Active Substance: SECUKINUMAB
     Dosage: 150 MG, QMO (ONCE EVERY 4 WEEKS)
     Route: 058

REACTIONS (1)
  - Nasal discomfort [Unknown]

NARRATIVE: CASE EVENT DATE: 20210305
